FAERS Safety Report 7068292-0 (Version None)
Quarter: 2010Q4

REPORT INFORMATION
  Report Type: 
  Country: None (occurrence: None)
  Receive Date: 20101028
  Receipt Date: 20101022
  Transmission Date: 20110411
  Serious: Yes (Hospitalization, Congenital Anomaly)
  Sender: FDA-Public Use
  Company Number: A0747563A

PATIENT
  Sex: Male

DRUGS (5)
  1. PAXIL [Suspect]
     Indication: DEPRESSION
     Dates: start: 20000101
  2. PRENATAL VITAMINS [Concomitant]
  3. BACTRIM [Concomitant]
     Indication: URINARY TRACT INFECTION
  4. VALTREX [Concomitant]
  5. ACYCLOVIR SODIUM [Concomitant]

REACTIONS (8)
  - AORTA HYPOPLASIA [None]
  - ATRIAL SEPTAL DEFECT [None]
  - CONGENITAL TRICUSPID VALVE ATRESIA [None]
  - DRUG EXPOSURE DURING PREGNANCY [None]
  - HEART DISEASE CONGENITAL [None]
  - SOLITARY KIDNEY [None]
  - TRANSPOSITION OF THE GREAT VESSELS [None]
  - VENTRICULAR SEPTAL DEFECT [None]
